FAERS Safety Report 12893825 (Version 2)
Quarter: 2016Q4

REPORT INFORMATION
  Report Type: Report from Study
  Country: TR (occurrence: TR)
  Receive Date: 20161028
  Receipt Date: 20161128
  Transmission Date: 20170207
  Serious: Yes (Hospitalization)
  Sender: FDA-Public Use
  Company Number: TR-ASTELLAS-2016US039560

PATIENT
  Age: 72 Year
  Sex: Male
  Weight: 60 kg

DRUGS (5)
  1. METOPROLOL. [Concomitant]
     Active Substance: METOPROLOL
     Indication: PRODUCT USED FOR UNKNOWN INDICATION
     Dosage: UNK UNK, UNKNOWN FREQ.
     Route: 065
     Dates: start: 20150409
  2. EXELON [Concomitant]
     Active Substance: RIVASTIGMINE TARTRATE
     Indication: PRODUCT USED FOR UNKNOWN INDICATION
     Dosage: UNK UNK, UNKNOWN FREQ.
     Route: 065
     Dates: start: 201601
  3. PERINDOPRIL + AMLODIPINA KRKA [Concomitant]
     Indication: PRODUCT USED FOR UNKNOWN INDICATION
     Dosage: UNK UNK, UNKNOWN FREQ.
     Route: 065
     Dates: start: 20150330
  4. ENZALUTAMIDE [Suspect]
     Active Substance: ENZALUTAMIDE
     Indication: PROSTATE CANCER
     Dosage: UNK, UNKNOWN FREQ.
     Route: 048
     Dates: start: 20150218
  5. LEUPROLIDE ACETATE. [Concomitant]
     Active Substance: LEUPROLIDE ACETATE
     Indication: PRODUCT USED FOR UNKNOWN INDICATION
     Dosage: UNK UNK, UNKNOWN FREQ.
     Route: 065
     Dates: start: 2002

REACTIONS (1)
  - Cystitis haemorrhagic [Recovered/Resolved]

NARRATIVE: CASE EVENT DATE: 20160920
